FAERS Safety Report 21614633 (Version 2)
Quarter: 2023Q2

REPORT INFORMATION
  Report Type: Report from Study
  Country: US (occurrence: US)
  Receive Date: 20221118
  Receipt Date: 20230601
  Transmission Date: 20230722
  Serious: Yes (Hospitalization)
  Sender: FDA-Public Use
  Company Number: US-ARGENX-2022-ARGX-US001425

PATIENT
  Age: 59 Year
  Sex: Male
  Weight: 126.98 kg

DRUGS (2)
  1. VYVGART [Suspect]
     Active Substance: EFGARTIGIMOD ALFA-FCAB
     Indication: Myasthenia gravis
     Dosage: 1200 MG, 1/WEEK
     Route: 042
     Dates: start: 20220706
  2. FENTANYL [Concomitant]
     Active Substance: FENTANYL
     Indication: Neoplasm malignant

REACTIONS (7)
  - Drug withdrawal syndrome [Not Recovered/Not Resolved]
  - Device infusion issue [Not Recovered/Not Resolved]
  - Drug interaction [Not Recovered/Not Resolved]
  - Somnolence [Unknown]
  - Muscle spasms [Unknown]
  - Back pain [Unknown]
  - Treatment noncompliance [Unknown]

NARRATIVE: CASE EVENT DATE: 20220720
